FAERS Safety Report 25017502 (Version 1)
Quarter: 2025Q1

REPORT INFORMATION
  Report Type: Spontaneous
  Country: US (occurrence: None)
  Receive Date: 20250226
  Receipt Date: 20250226
  Transmission Date: 20250409
  Serious: Yes (Death)
  Sender: FDA-CTU
  Company Number: None

PATIENT
  Age: 85 Year
  Sex: Female

DRUGS (1)
  1. COLLAGENASE SANTYL [Suspect]
     Active Substance: COLLAGENASE CLOSTRIDIUM HISTOLYTICUM
     Dosage: OTHER QUANTITY : NICKLE THICK LAYER ;?FREQUENCY : DAILY;?
     Route: 061
     Dates: start: 20241231

REACTIONS (4)
  - Loss of consciousness [None]
  - Fall [None]
  - Head injury [None]
  - Ill-defined disorder [None]

NARRATIVE: CASE EVENT DATE: 20250224
